FAERS Safety Report 4545313-8 (Version None)
Quarter: 2004Q4

REPORT INFORMATION
  Report Type: 
  Country: None (occurrence: None)
  Receive Date: 20041222
  Receipt Date: 20040511
  Transmission Date: 20050328
  Serious: Yes (Hospitalization, Other)
  Sender: FDA-Public Use
  Company Number: USA040567263

PATIENT
  Age: 48 Year
  Sex: Female
  Weight: 103.4201 kg

DRUGS (10)
  1. PROZAC [Suspect]
     Indication: DEPRESSION
     Dosage: 80 MG/DAY
     Dates: end: 20030101
  2. HUMULIN 70/30 [Suspect]
     Indication: DIABETES MELLITUS
     Dosage: 78 U DAY
  3. HUMALOG [Suspect]
     Indication: DIABETES MELLITUS
  4. ZYPREXA [Suspect]
     Indication: DEPRESSION
     Dates: start: 19990901, end: 20000101
  5. DILANTIN [Concomitant]
  6. TEGRETOL [Concomitant]
  7. RISPERIDONE [Concomitant]
  8. ATIVAN [Concomitant]
  9. VIOXX [Concomitant]
  10. CENTRUM A TO ZINC [Concomitant]

REACTIONS (14)
  - ASTHENIA [None]
  - BLINDNESS [None]
  - BLOOD GLUCOSE INCREASED [None]
  - BLOOD PRESSURE DECREASED [None]
  - CONVULSION [None]
  - DIABETES MELLITUS [None]
  - DYSPEPSIA [None]
  - HYPOAESTHESIA [None]
  - LOSS OF CONSCIOUSNESS [None]
  - NAUSEA [None]
  - PAIN [None]
  - POLLAKIURIA [None]
  - VISION BLURRED [None]
  - WEIGHT INCREASED [None]
